FAERS Safety Report 6866008-1 (Version None)
Quarter: 2010Q3

REPORT INFORMATION
  Report Type: 
  Country: None (occurrence: None)
  Receive Date: 20100722
  Receipt Date: 20100712
  Transmission Date: 20110219
  Serious: Yes (Death, Other)
  Sender: FDA-Public Use
  Company Number: PT-GENZYME-CLOF-1000868

PATIENT
  Sex: Female
  Weight: 25 kg

DRUGS (5)
  1. EVOLTRA [Suspect]
     Indication: ACUTE LYMPHOCYTIC LEUKAEMIA
     Dosage: 40 MG/M2, QDX5
     Route: 042
     Dates: start: 20100203, end: 20100207
  2. ETOPOSIDE [Suspect]
     Indication: ACUTE LYMPHOCYTIC LEUKAEMIA
     Dosage: 100 MG/M2, QDX5
     Route: 042
     Dates: start: 20100203, end: 20100207
  3. CYTOXAN [Suspect]
     Indication: ACUTE LYMPHOCYTIC LEUKAEMIA
     Dosage: 340 MG/M2, QDX5
     Route: 042
     Dates: start: 20100203, end: 20100207
  4. PIPERACILLIN W [Concomitant]
     Indication: LUNG INFECTION
     Dosage: 2250 MG, UNK
     Route: 042
     Dates: start: 20100129
  5. AMICACINA [Concomitant]
     Indication: NEUTROPENIA
     Dosage: 500 UNK, UNK
     Route: 042
     Dates: start: 20100202

REACTIONS (5)
  - PNEUMONIA [None]
  - PYREXIA [None]
  - RENAL FAILURE [None]
  - RESPIRATORY FAILURE [None]
  - RESPIRATORY SYNCYTIAL VIRUS INFECTION [None]
